FAERS Safety Report 5994944-7 (Version None)
Quarter: 2008Q4

REPORT INFORMATION
  Report Type: 
  Country: None (occurrence: None)
  Receive Date: 20081210
  Receipt Date: 20081202
  Transmission Date: 20090506
  Serious: No
  Sender: FDA-Public Use
  Company Number: 2008JP005645

PATIENT
  Age: 8 Year
  Sex: Male

DRUGS (1)
  1. PROTOPIC [Suspect]
     Indication: DERMATITIS ATOPIC
     Dosage: 0.03% , TOPICAL
     Route: 061
     Dates: start: 20060331

REACTIONS (2)
  - INFECTED EPIDERMAL CYST [None]
  - SKIN PAPILLOMA [None]
